FAERS Safety Report 5711926 (Version 2)
Quarter: 2013Q4

REPORT INFORMATION
  Report Type: Spontaneous
  Country: FI (occurrence: FI)
  Receive Date: 20050103
  Receipt Date: 20131120
  Transmission Date: 20140711
  Serious: Yes (Congenital Anomaly)
  Sender: FDA-Public Use
  Company Number: GXKR2004FI00619

PATIENT
  Age: 23 Month
  Sex: Male

DRUGS (4)
  1. BISOPROLOL [Suspect]
     Dosage: MATERNAL DOSE 5 MG QD
     Route: 064
  2. SUMATRIPTAN [Suspect]
     Dosage: MATERNAL DOSE 100 MG, QW
  3. NAPROXEN [Suspect]
     Dosage: MATERNAL DOSE 1100 MG, QW
     Route: 064
  4. PARACETAMOL [Suspect]
     Route: 064

REACTIONS (6)
  - Cleft lip and palate [Unknown]
  - Hypertelorism of orbit [Unknown]
  - Dysmorphism [Unknown]
  - Paresis [Unknown]
  - Foot deformity [Unknown]
  - Foetal exposure during pregnancy [Unknown]
